FAERS Safety Report 8903501 (Version 2)
Quarter: 2012Q4

REPORT INFORMATION
  Report Type: 
  Country: US (occurrence: US)
  Receive Date: 20121113
  Receipt Date: 20121226
  Transmission Date: 20130627
  Serious: No
  Sender: FDA-Public Use
  Company Number: US-PFIZER INC-2012282730

PATIENT
  Age: 46 Year
  Sex: Female

DRUGS (10)
  1. CELEBREX [Suspect]
     Indication: NECK PAIN
     Dosage: 200 mg, 1x/day
     Route: 048
     Dates: start: 20100414, end: 20100417
  2. LISINOPRIL [Suspect]
     Indication: HYPERTENSION
     Dosage: UNK
     Route: 048
  3. LISINOPRIL [Suspect]
     Indication: DIABETES
  4. VOLTAREN [Suspect]
     Indication: NECK PAIN
     Dosage: 75 mg, 2x/day
     Route: 048
     Dates: start: 20100418, end: 20100601
  5. LANTUS [Concomitant]
     Indication: DIABETES
     Dosage: 60 units
  6. METFORMIN [Concomitant]
     Indication: DIABETES
     Dosage: 500 mg, 2x/day
  7. CYCLOBENZAPRINE [Concomitant]
     Indication: DEGENERATIVE DISC DISEASE
     Dosage: 10 mg, 2x/day Pm
  8. TRICOR [Concomitant]
     Indication: HYPERLIPIDAEMIA
     Dosage: 145 mg, 1x/day
  9. DIOVAN HCT [Concomitant]
     Indication: HYPERTENSION
     Dosage: Hydrochlorothiazide (320)/valsartan(25)mg daily
  10. DIOVAN HCT [Concomitant]
     Indication: DIABETES

REACTIONS (3)
  - Drug hypersensitivity [Unknown]
  - Oedema peripheral [Unknown]
  - Swelling [Recovered/Resolved]
